FAERS Safety Report 8010923-2 (Version None)
Quarter: 2011Q4

REPORT INFORMATION
  Report Type: 
  Country: None (occurrence: None)
  Receive Date: 20111222
  Receipt Date: 20111212
  Transmission Date: 20120403
  Serious: Yes (Other)
  Sender: FDA-Public Use
  Company Number: 2011MA017804

PATIENT
  Sex: Female

DRUGS (2)
  1. MIRTAZAPINE [Suspect]
     Indication: POST-TRAUMATIC STRESS DISORDER
     Dosage: 15MG
  2. MIRTAZAPINE [Suspect]
     Indication: POST-TRAUMATIC STRESS DISORDER
     Dosage: 15 MG

REACTIONS (9)
  - MALAISE [None]
  - NAUSEA [None]
  - CHEST PAIN [None]
  - PREGNANCY [None]
  - DYSPNOEA [None]
  - NIGHTMARE [None]
  - TREMOR [None]
  - MATERNAL EXPOSURE DURING PREGNANCY [None]
  - EATING DISORDER [None]
